FAERS Safety Report 7738443-0 (Version None)
Quarter: 2011Q3

REPORT INFORMATION
  Report Type: 
  Country: None (occurrence: None)
  Receive Date: 20110908
  Receipt Date: 20110831
  Transmission Date: 20111222
  Serious: Yes (Other)
  Sender: FDA-Public Use
  Company Number: US-US-EMD SERONO, INC.-7080732

PATIENT
  Sex: Female

DRUGS (1)
  1. REBIF [Suspect]
     Indication: PRODUCT USED FOR UNKNOWN INDICATION
     Route: 058
     Dates: start: 20100902

REACTIONS (3)
  - CENTRAL NERVOUS SYSTEM LESION [None]
  - INTERVERTEBRAL DISC DEGENERATION [None]
  - RAYNAUD'S PHENOMENON [None]
